FAERS Safety Report 9620393 (Version 1)
Quarter: 2013Q4

REPORT INFORMATION
  Report Type: Spontaneous
  Country: US (occurrence: US)
  Receive Date: 20131015
  Receipt Date: 20131015
  Transmission Date: 20140711
  Serious: No
  Sender: FDA-Public Use
  Company Number: -SAAVPROD-BMS16159345

PATIENT
  Age: 54 Year
  Sex: Female
  Weight: 57.59 kg

DRUGS (3)
  1. AVALIDE TABS 150MG/12.5MG [Suspect]
     Indication: HYPERTENSION
     Dosage: 1DF=150/12.5 MG
  2. AVAPRO [Suspect]
     Indication: HYPERTENSION
  3. MONOPRIL [Suspect]

REACTIONS (2)
  - Pharyngeal oedema [Unknown]
  - Cough [Unknown]
